FAERS Safety Report 6123775-2 (Version None)
Quarter: 2009Q1

REPORT INFORMATION
  Report Type: 
  Country: None (occurrence: None)
  Receive Date: 20090319
  Receipt Date: 20090311
  Transmission Date: 20090719
  Serious: Yes (Other)
  Sender: FDA-Public Use
  Company Number: US-BAYER-200915593NA

PATIENT
  Sex: Female

DRUGS (1)
  1. TRASYLOL [Suspect]
     Indication: CARDIAC OPERATION
     Dates: start: 20020708

REACTIONS (9)
  - ADVERSE EVENT [None]
  - ANHEDONIA [None]
  - ANXIETY [None]
  - CEREBROVASCULAR ACCIDENT [None]
  - DEPRESSION [None]
  - FEAR [None]
  - INJURY [None]
  - PAIN [None]
  - RENAL FAILURE [None]
